FAERS Safety Report 7384039-2 (Version None)
Quarter: 2011Q1

REPORT INFORMATION
  Report Type: 
  Country: None (occurrence: None)
  Receive Date: 20110322
  Receipt Date: 20110310
  Transmission Date: 20110831
  Serious: Yes (Other)
  Sender: FDA-Public Use
  Company Number: 004387

PATIENT
  Sex: Female
  Weight: 64.4 kg

DRUGS (9)
  1. FOSAMAX [Concomitant]
  2. CERTOLIZUMAB PEGOL [Suspect]
     Indication: RHEUMATOID ARTHRITIS
     Dosage: 400, 200 MG 1X2 WEEKS, 3 DOSE SUBCUTANEOUS
     Route: 058
     Dates: start: 20090101, end: 20100105
  3. CERTOLIZUMAB PEGOL [Suspect]
     Indication: RHEUMATOID ARTHRITIS
     Dosage: 400, 200 MG 1X2 WEEKS, 3 DOSE SUBCUTANEOUS
     Route: 058
     Dates: start: 20090804, end: 20090101
  4. PREDNISONE [Concomitant]
  5. FOLIC ACID [Concomitant]
  6. MULTI-VITAMIN [Concomitant]
  7. MAGNESIUM CARBONATE [Concomitant]
  8. METHOTREXATE [Concomitant]
  9. NORCO [Concomitant]

REACTIONS (2)
  - CARCINOID TUMOUR OF THE GASTROINTESTINAL TRACT [None]
  - HAEMORRHOIDS [None]
